FAERS Safety Report 15759896 (Version 1)
Quarter: 2018Q4

REPORT INFORMATION
  Report Type: Spontaneous
  Country: AT (occurrence: AT)
  Receive Date: 20181226
  Receipt Date: 20181226
  Transmission Date: 20190205
  Serious: Yes (Other)
  Sender: FDA-Public Use
  Company Number: AT-ACCORD-098142

PATIENT
  Age: 82 Year
  Sex: Male

DRUGS (6)
  1. OFATUMUMAB [Suspect]
     Active Substance: OFATUMUMAB
     Indication: PRODUCT USED FOR UNKNOWN INDICATION
     Dosage: 1000 MG (DAY 8), QD
     Route: 065
  2. RITUXIMAB. [Suspect]
     Active Substance: RITUXIMAB
     Indication: HAIRY CELL LEUKAEMIA
     Dosage: 375 MG/M2, DAY 1
     Route: 042
  3. 2-CDA [Concomitant]
     Active Substance: CLADRIBINE
     Indication: HAIRY CELL LEUKAEMIA
     Dosage: UNK
     Route: 065
  4. LITAK [Suspect]
     Active Substance: CLADRIBINE
     Indication: HAIRY CELL LEUKAEMIA
     Dosage: 0.14 MG/KG (DAYS 1-5), QD
     Route: 065
  5. BENDAMUSTINE/BENDAMUSTINE HYDROCHLORIDE [Suspect]
     Active Substance: BENDAMUSTINE HYDROCHLORIDE
     Indication: HAIRY CELL LEUKAEMIA
     Dosage: 100 MG/M2, ON DAYS 1 AND 2
     Route: 065
  6. ARZERRA [Suspect]
     Active Substance: OFATUMUMAB
     Indication: HAIRY CELL LEUKAEMIA
     Dosage: 300 MG (DAY 1), QD
     Route: 065

REACTIONS (3)
  - Hairy cell leukaemia [Recovered/Resolved]
  - Skin toxicity [Unknown]
  - Therapy non-responder [Unknown]
